FAERS Safety Report 23875812 (Version 1)
Quarter: 2024Q2

REPORT INFORMATION
  Report Type: Spontaneous
  Country: US (occurrence: US)
  Receive Date: 20240520
  Receipt Date: 20240520
  Transmission Date: 20240715
  Serious: No
  Sender: FDA-Public Use
  Company Number: US-SA-SAC20240514000589

PATIENT
  Age: 32 Year
  Sex: Male
  Weight: 136.07 kg

DRUGS (4)
  1. DUPIXENT [Suspect]
     Active Substance: DUPILUMAB
     Indication: Nasal polyps
     Dosage: 300 MG, QOW
     Route: 058
     Dates: start: 202312
  2. IBUPROFEN [Concomitant]
     Active Substance: IBUPROFEN
  3. EXCEDRIN MIGRAINE [Concomitant]
     Active Substance: ACETAMINOPHEN\ASPIRIN\CAFFEINE
     Dosage: UNK
  4. NYSTATIN [Concomitant]
     Active Substance: NYSTATIN

REACTIONS (1)
  - Tinea infection [Unknown]

NARRATIVE: CASE EVENT DATE: 20240501
